FAERS Safety Report 9444540 (Version 1)
Quarter: 2013Q3

REPORT INFORMATION
  Report Type: Spontaneous
  Country: US (occurrence: US)
  Receive Date: 20130807
  Receipt Date: 20130807
  Transmission Date: 20140515
  Serious: No
  Sender: FDA-Public Use
  Company Number: US-PFIZER INC-2013226653

PATIENT
  Age: 59 Year
  Sex: Female
  Weight: 49.89 kg

DRUGS (4)
  1. SOLU-MEDROL [Suspect]
     Dosage: UNK
  2. ACTEMRA [Suspect]
     Dosage: UNK
     Route: 042
  3. TYLENOL [Suspect]
     Dosage: UNK
  4. ATENOLOL [Concomitant]
     Indication: HYPERTENSION
     Dosage: UNK

REACTIONS (3)
  - Hypersensitivity [Unknown]
  - Headache [Unknown]
  - Rash pruritic [Recovered/Resolved]
